FAERS Safety Report 15506213 (Version 7)
Quarter: 2022Q2

REPORT INFORMATION
  Report Type: Spontaneous
  Country: PL (occurrence: PL)
  Receive Date: 20181016
  Receipt Date: 20220627
  Transmission Date: 20220720
  Serious: Yes (Hospitalization, Other)
  Sender: FDA-Public Use
  Company Number: PL-ACCORD-067369

PATIENT
  Age: 48 Year
  Sex: Female

DRUGS (20)
  1. LACIDIPINE [Suspect]
     Active Substance: LACIDIPINE
     Indication: Hypertension
     Dosage: 4 MILLIGRAM, QD ((2 MG TWICE A DAY, INCREASE IN THE EVENING DOSE TO 4 MG)
     Route: 048
  2. LACIDIPINE [Suspect]
     Active Substance: LACIDIPINE
     Dosage: 2 MILLIGRAM, QD
     Route: 048
  3. LACIDIPINE [Suspect]
     Active Substance: LACIDIPINE
     Dosage: 4 MILLIGRAM, PM
     Route: 048
  4. INDAPAMIDE [Suspect]
     Active Substance: INDAPAMIDE
     Indication: Hypertension
     Dosage: 1.5 MG, QD,(1.5 MG 1 X DAY - IN THE MORNING)
     Route: 065
  5. INDAPAMIDE [Suspect]
     Active Substance: INDAPAMIDE
     Dosage: 5 MILLIGRAM, QD (5 MILLIGRAM DAILY; IN EVENING )
     Route: 048
  6. INDAPAMIDE [Suspect]
     Active Substance: INDAPAMIDE
     Dosage: 1.25 MILLIGRAM, AM
     Route: 065
  7. METOPROLOL [Suspect]
     Active Substance: METOPROLOL
     Indication: Hypertension
     Dosage: 25 MG, QD,(25 MG 1 X DAY - IN THE MORNING)
     Route: 048
  8. PERINDOPRIL [Suspect]
     Active Substance: PERINDOPRIL
     Indication: Hypertension
     Dosage: 5 MILLIGRAM, AM
     Route: 065
  9. AMLODIPINE [Suspect]
     Active Substance: AMLODIPINE BESYLATE
     Indication: Hypertension
     Dosage: 10 MILLIGRAM, AM
     Route: 065
  10. BISOPROLOL [Suspect]
     Active Substance: BISOPROLOL
     Indication: Hypertension
     Dosage: 5 MILLIGRAM
     Route: 065
  11. METOPROLOL\RAMIPRIL [Suspect]
     Active Substance: METOPROLOL\RAMIPRIL
     Indication: Hypertension
     Dosage: 4 MILLIGRAM, QD
     Route: 048
  12. CAPTOPRIL [Concomitant]
     Active Substance: CAPTOPRIL
     Indication: Hypertensive crisis
     Dosage: 25 MILLIGRAM
     Route: 060
  13. RAMIPRIL [Concomitant]
     Active Substance: RAMIPRIL
     Indication: Hypertension
     Dosage: 5 MG, QD,(5 MG 1 X DAY IN THE EVENING)
     Route: 048
  14. FUROSEMIDE [Concomitant]
     Active Substance: FUROSEMIDE
     Indication: Hypertensive crisis
     Dosage: 20 MILLIGRAM
     Route: 042
  15. URAPIDIL [Concomitant]
     Active Substance: URAPIDIL
     Indication: Hypertensive crisis
     Dosage: UNK
     Route: 042
  16. AMLODIPINE [Concomitant]
     Active Substance: AMLODIPINE BESYLATE
     Indication: Product used for unknown indication
     Dosage: UNK
     Route: 065
  17. PERINDOPRIL ERBUMINE [Concomitant]
     Active Substance: PERINDOPRIL ERBUMINE
     Indication: Product used for unknown indication
     Dosage: UNK
     Route: 065
  18. INDAPAMIDE [Concomitant]
     Active Substance: INDAPAMIDE
     Indication: Hypertension
     Dosage: ONCE DAILY IN THE MORNING
     Route: 065
  19. LACIDIPINE [Concomitant]
     Active Substance: LACIDIPINE
     Indication: Hypertension
     Dosage: 4 MILLIGRAM, BID
     Route: 065
  20. LACIDIPINE [Concomitant]
     Active Substance: LACIDIPINE
     Dosage: 2 MILLIGRAM, BID
     Route: 065

REACTIONS (8)
  - Treatment noncompliance [Unknown]
  - Treatment failure [Unknown]
  - Product dose omission issue [Unknown]
  - Blood pressure increased [Unknown]
  - Malaise [Unknown]
  - Blood pressure fluctuation [Unknown]
  - Therapeutic product effect incomplete [Recovered/Resolved]
  - Blood pressure decreased [Recovering/Resolving]
